FAERS Safety Report 5647504-1 (Version None)
Quarter: 2008Q1

REPORT INFORMATION
  Report Type: 
  Country: None (occurrence: None)
  Receive Date: 20080131
  Receipt Date: 20071114
  Transmission Date: 20080703
  Serious: No
  Sender: FDA-Public Use
  Company Number: 163-21880-07110880

PATIENT
  Sex: Female

DRUGS (5)
  1. REVLIMID [Suspect]
     Indication: MULTIPLE MYELOMA
     Dosage: 25 MG, DAILY X 21 DAYS, ORAL
     Route: 048
     Dates: start: 20070803
  2. LYRICA [Concomitant]
  3. METOPROLOL TARTRATE [Concomitant]
  4. DEXAMETHASONE TAB [Concomitant]
  5. NIFEDIPINE [Concomitant]

REACTIONS (1)
  - NIGHT SWEATS [None]
